FAERS Safety Report 7497532-9 (Version None)
Quarter: 2011Q2

REPORT INFORMATION
  Report Type: 
  Country: None (occurrence: None)
  Receive Date: 20110523
  Receipt Date: 20110510
  Transmission Date: 20111010
  Serious: Yes (Other)
  Sender: FDA-Public Use
  Company Number: PHHY2011AU40687

PATIENT
  Sex: Female

DRUGS (1)
  1. FEMARA [Suspect]
     Indication: BREAST CANCER
     Dates: start: 20110101

REACTIONS (6)
  - DISCOMFORT [None]
  - MUSCLE SPASMS [None]
  - HOT FLUSH [None]
  - LETHARGY [None]
  - ARTHRITIS [None]
  - GLAUCOMA [None]
